FAERS Safety Report 25612995 (Version 1)
Quarter: 2025Q3

REPORT INFORMATION
  Report Type: Spontaneous
  Country: US (occurrence: None)
  Receive Date: 20250726
  Receipt Date: 20250726
  Transmission Date: 20251020
  Serious: Yes (Other)
  Sender: FDA-CTU
  Company Number: None

PATIENT
  Age: 60 Year
  Sex: Male

DRUGS (2)
  1. EFFEXOR XR [Suspect]
     Active Substance: VENLAFAXINE HYDROCHLORIDE
     Dates: start: 20070515, end: 20071215
  2. XANAX [Suspect]
     Active Substance: ALPRAZOLAM

REACTIONS (10)
  - Anxiety [None]
  - Electric shock sensation [None]
  - Insomnia [None]
  - Withdrawal syndrome [None]
  - Nausea [None]
  - Panic disorder [None]
  - Agoraphobia [None]
  - Neuralgia [None]
  - Electric shock sensation [None]
  - Drug dependence [None]

NARRATIVE: CASE EVENT DATE: 20071215
